FAERS Safety Report 23204277 (Version 1)
Quarter: 2023Q4

REPORT INFORMATION
  Report Type: Other
  Country: CA (occurrence: None)
  Receive Date: 20231120
  Receipt Date: 20231120
  Transmission Date: 20240110
  Serious: Yes (Other)
  Sender: FDA-Public Use
  Company Number: CA-ROCHE-3455610

PATIENT
  Sex: Male

DRUGS (1)
  1. OCREVUS [Suspect]
     Active Substance: OCRELIZUMAB
     Indication: Relapsing-remitting multiple sclerosis
     Dosage: 300 MG AT DAY 0 AND 14, THEN 600 MG EVERY 6 MONTH
     Route: 042
     Dates: start: 20230706

REACTIONS (14)
  - Memory impairment [Not Recovered/Not Resolved]
  - Asthenia [Not Recovered/Not Resolved]
  - Hallucination, visual [Not Recovered/Not Resolved]
  - Hypoaesthesia [Unknown]
  - Limb discomfort [Unknown]
  - Tremor [Unknown]
  - Muscle spasms [Unknown]
  - Nocturia [Unknown]
  - Diarrhoea [Unknown]
  - Discomfort [Unknown]
  - Presbyopia [Unknown]
  - Dysphagia [Unknown]
  - Snoring [Unknown]
  - Myelitis [Unknown]
